FAERS Safety Report 9692605 (Version 3)
Quarter: 2014Q1

REPORT INFORMATION
  Report Type: Spontaneous
  Country: JP (occurrence: JP)
  Receive Date: 20131118
  Receipt Date: 20140331
  Transmission Date: 20141002
  Serious: Yes (Other)
  Sender: FDA-Public Use
  Company Number: PHHY2013JP130706

PATIENT
  Age: 46 Year
  Sex: Male

DRUGS (6)
  1. TEGRETOL [Suspect]
     Indication: CEREBRAL PALSY
     Route: 048
  2. TEGRETOL [Suspect]
     Indication: QUADRIPLEGIA
  3. ALEVIATIN [Suspect]
     Indication: EPILEPSY
     Route: 048
  4. LAMICTAL [Concomitant]
     Route: 048
  5. E KEPPRA [Concomitant]
     Route: 048
  6. MEILAX [Concomitant]
     Route: 048

REACTIONS (5)
  - Gingival hyperplasia [Unknown]
  - Tooth fracture [Unknown]
  - Tooth impacted [Unknown]
  - Dental plaque [Unknown]
  - Loose tooth [Unknown]
